FAERS Safety Report 7037862-8 (Version None)
Quarter: 2010Q4

REPORT INFORMATION
  Report Type: 
  Country: None (occurrence: None)
  Receive Date: 20101011
  Receipt Date: 20101001
  Transmission Date: 20110411
  Serious: Yes (Other)
  Sender: FDA-Public Use
  Company Number: CHPA2010US15578

PATIENT
  Age: 62 Year
  Sex: Male

DRUGS (4)
  1. DOAN'S EXTRA STRENGTH PILLS (NCH) [Suspect]
     Indication: BACK PAIN
     Dosage: 4-6 CAPLETS, QD
     Route: 048
  2. DOAN'S EXTRA STRENGTH PILLS (NCH) [Suspect]
     Dosage: 2 DF, Q3H
     Route: 048
  3. VICODIN [Suspect]
     Indication: PAIN
  4. ADVIL LIQUI-GELS [Suspect]

REACTIONS (5)
  - ABDOMINAL PAIN UPPER [None]
  - GASTRIC HAEMORRHAGE [None]
  - INAPPROPRIATE SCHEDULE OF DRUG ADMINISTRATION [None]
  - INTENTIONAL DRUG MISUSE [None]
  - OVERDOSE [None]
